FAERS Safety Report 10268381 (Version 1)
Quarter: 2014Q2

REPORT INFORMATION
  Report Type: Spontaneous
  Country: US (occurrence: US)
  Receive Date: 20140630
  Receipt Date: 20140630
  Transmission Date: 20141212
  Serious: No
  Sender: FDA-Public Use
  Company Number: US-009507513-1406USA008620

PATIENT
  Age: 20 Year
  Sex: Female
  Weight: 137 kg

DRUGS (2)
  1. NEXPLANON [Suspect]
     Indication: CONTRACEPTION
     Dosage: 1 ROD, EVERY THREE YEARS
     Route: 059
     Dates: start: 20140304
  2. BIOTIN [Concomitant]

REACTIONS (4)
  - Menstruation delayed [Recovered/Resolved]
  - Hypomenorrhoea [Recovered/Resolved]
  - Menorrhagia [Recovered/Resolved]
  - Menstruation irregular [Not Recovered/Not Resolved]
